FAERS Safety Report 23481105 (Version 2)
Quarter: 2024Q1

REPORT INFORMATION
  Report Type: Spontaneous
  Country: US (occurrence: US)
  Receive Date: 20240205
  Receipt Date: 20240321
  Transmission Date: 20240410
  Serious: No
  Sender: FDA-Public Use
  Company Number: US-GSKCCFUS-Case-01919042_AE-106877

PATIENT
  Sex: Female

DRUGS (1)
  1. TRELEGY ELLIPTA [Suspect]
     Active Substance: FLUTICASONE FUROATE\UMECLIDINIUM BROMIDE\VILANTEROL TRIFENATATE
     Indication: Product used for unknown indication
     Dosage: UNK, 100/62.5/25 MCG
     Route: 055

REACTIONS (6)
  - Feeling abnormal [Unknown]
  - Dyspnoea [Unknown]
  - Ill-defined disorder [Unknown]
  - Increased upper airway secretion [Unknown]
  - Abdominal distension [Unknown]
  - Epigastric discomfort [Unknown]
